FAERS Safety Report 8311996-X (Version None)
Quarter: 2012Q2

REPORT INFORMATION
  Report Type: 
  Country: None (occurrence: None)
  Receive Date: 20120425
  Receipt Date: 20120412
  Transmission Date: 20120825
  Serious: Yes (Hospitalization)
  Sender: FDA-Public Use
  Company Number: US-JNJFOC-20120405452

PATIENT
  Age: 5 Year
  Sex: Female

DRUGS (3)
  1. BENADRYL [Suspect]
     Indication: PRURITUS
     Route: 048
  2. BENADRYL [Suspect]
     Indication: FOOD ALLERGY
     Route: 048
  3. BENADRYL [Suspect]
     Indication: HYPERSENSITIVITY
     Route: 048

REACTIONS (4)
  - OFF LABEL USE [None]
  - ADVERSE REACTION [None]
  - PRODUCT QUALITY ISSUE [None]
  - EXPIRED DRUG ADMINISTERED [None]
